FAERS Safety Report 9265635 (Version 1)
Quarter: 2013Q2

REPORT INFORMATION
  Report Type: Spontaneous
  Country: IT (occurrence: IT)
  Receive Date: 20130501
  Receipt Date: 20130501
  Transmission Date: 20140414
  Serious: Yes (Hospitalization)
  Sender: FDA-Public Use
  Company Number: IT-ASTRAZENECA-2013SE28584

PATIENT
  Age: 27045 Day
  Sex: Male

DRUGS (5)
  1. TENORMIN [Suspect]
     Indication: HYPERTENSION
     Route: 048
     Dates: start: 20130421, end: 20130421
  2. MEPROBAMATE [Concomitant]
  3. OMEPRAZOLE [Concomitant]
  4. NORVASC [Concomitant]
  5. CARDIOASPIRIN [Concomitant]

REACTIONS (2)
  - Sinus bradycardia [Recovered/Resolved]
  - Syncope [Recovered/Resolved]
